FAERS Safety Report 13455330 (Version 1)
Quarter: 2017Q2

REPORT INFORMATION
  Report Type: Spontaneous
  Country: US (occurrence: US)
  Receive Date: 20170419
  Receipt Date: 20170419
  Transmission Date: 20170830
  Serious: No
  Sender: FDA-Public Use
  Company Number: US-PFIZER INC-2017164217

PATIENT
  Sex: Female

DRUGS (2)
  1. LYRICA [Suspect]
     Active Substance: PREGABALIN
     Dosage: 100 MG, 4X/DAY
  2. LORAZEPAM. [Concomitant]
     Active Substance: LORAZEPAM
     Indication: AUTOIMMUNE THYROIDITIS
     Dosage: 10/325 MG, 1X/DAY

REACTIONS (5)
  - Dizziness [Unknown]
  - Affective disorder [Unknown]
  - Product use issue [Unknown]
  - Constipation [Unknown]
  - Balance disorder [Unknown]
